FAERS Safety Report 5266744-7 (Version None)
Quarter: 2007Q1

REPORT INFORMATION
  Report Type: 
  Country: None (occurrence: None)
  Receive Date: 20070315
  Receipt Date: 20070305
  Transmission Date: 20070707
  Serious: Yes (Hospitalization)
  Sender: FDA-Public Use
  Company Number: NL-ABBOTT-07P-114-0360893-00

PATIENT
  Sex: Male

DRUGS (6)
  1. DEPAKENE [Suspect]
     Indication: EPILEPSY
     Route: 048
  2. DEPAKENE [Suspect]
     Route: 048
  3. DEPAKENE [Suspect]
     Route: 048
     Dates: end: 20050301
  4. LAMOTRIGINE [Concomitant]
     Indication: DRUG USE FOR UNKNOWN INDICATION
     Route: 048
  5. DIAZEPAM [Concomitant]
     Indication: DRUG USE FOR UNKNOWN INDICATION
     Route: 048
  6. ACETAMINOPHEN [Concomitant]
     Indication: DRUG USE FOR UNKNOWN INDICATION
     Route: 048

REACTIONS (22)
  - BRADYCARDIA [None]
  - CEREBELLAR ATROPHY [None]
  - CEREBELLAR SYNDROME [None]
  - CEREBRAL ATROPHY [None]
  - COGNITIVE DISORDER [None]
  - DECREASED ACTIVITY [None]
  - DECREASED APPETITE [None]
  - DIZZINESS [None]
  - DRUG TOXICITY [None]
  - ENCEPHALOPATHY [None]
  - FALL [None]
  - HALLUCINATIONS, MIXED [None]
  - HYPERTONIA [None]
  - MALAISE [None]
  - NAUSEA [None]
  - PARAESTHESIA [None]
  - PARKINSONISM [None]
  - PSYCHOTIC DISORDER [None]
  - SUSPICIOUSNESS [None]
  - VISION BLURRED [None]
  - VOMITING [None]
  - WEIGHT DECREASED [None]
